FAERS Safety Report 7083454-4 (Version None)
Quarter: 2010Q4

REPORT INFORMATION
  Report Type: 
  Country: None (occurrence: None)
  Receive Date: 20101104
  Receipt Date: 20101025
  Transmission Date: 20110411
  Serious: Yes (Other)
  Sender: FDA-Public Use
  Company Number: B0679934A

PATIENT
  Age: 84 Year
  Sex: Male

DRUGS (1)
  1. ZANTAC [Suspect]
     Dosage: 150MG PER DAY
     Route: 048
     Dates: start: 20100801

REACTIONS (2)
  - DERMATITIS BULLOUS [None]
  - PRURITUS [None]
